FAERS Safety Report 24396919 (Version 1)
Quarter: 2024Q4

REPORT INFORMATION
  Report Type: Spontaneous
  Country: US (occurrence: US)
  Receive Date: 20241004
  Receipt Date: 20241004
  Transmission Date: 20250115
  Serious: Yes (Hospitalization, Other)
  Sender: TAKEDA
  Company Number: US-TAKEDA-2024TUS097148

PATIENT
  Sex: Male
  Weight: 73 kg

DRUGS (2)
  1. ICLUSIG [Suspect]
     Active Substance: PONATINIB\PONATINIB HYDROCHLORIDE
     Indication: Acute lymphocytic leukaemia
     Dosage: 15 MILLIGRAM, QD
     Route: 048
     Dates: start: 2024
  2. ICLUSIG [Suspect]
     Active Substance: PONATINIB\PONATINIB HYDROCHLORIDE
     Dosage: 15 MILLIGRAM, QOD
     Route: 048

REACTIONS (5)
  - Staphylococcal infection [Unknown]
  - Immune system disorder [Unknown]
  - Pneumonia [Unknown]
  - Product use issue [Unknown]
  - Inappropriate schedule of product administration [Unknown]
